FAERS Safety Report 4954270-1 (Version None)
Quarter: 2006Q1

REPORT INFORMATION
  Report Type: 
  Country: None (occurrence: None)
  Receive Date: 20060327
  Receipt Date: 20060316
  Transmission Date: 20060701
  Serious: Yes (Hospitalization)
  Sender: FDA-Public Use
  Company Number: FR-GILEAD-2006-0009322

PATIENT
  Age: 51 Year
  Sex: Male
  Weight: 64 kg

DRUGS (6)
  1. EMTRIVA [Suspect]
     Route: 048
     Dates: start: 20060131, end: 20060217
  2. VIREAD [Suspect]
     Dates: start: 20060131, end: 20060217
  3. NORVIR [Suspect]
     Dates: start: 20060131, end: 20060217
  4. TELZIR [Suspect]
     Dates: start: 20060131, end: 20060217
  5. ROVALCYTE [Concomitant]
     Route: 048
  6. BACTRIM DS [Concomitant]

REACTIONS (2)
  - PYREXIA [None]
  - RASH MACULO-PAPULAR [None]
